FAERS Safety Report 6278225-2 (Version None)
Quarter: 2009Q3

REPORT INFORMATION
  Report Type: 
  Country: None (occurrence: None)
  Receive Date: 20090722
  Receipt Date: 20090713
  Transmission Date: 20100115
  Serious: Yes (Hospitalization, Other)
  Sender: FDA-Public Use
  Company Number: US-AMGEN-KDL345560

PATIENT
  Sex: Female

DRUGS (16)
  1. EPOGEN [Suspect]
     Indication: DIALYSIS
     Route: 042
     Dates: start: 20081107, end: 20090504
  2. ZEMPLAR [Concomitant]
     Dates: start: 20090301
  3. PHOSLO [Concomitant]
     Dates: start: 20090101
  4. PREDNISONE TAB [Concomitant]
     Route: 048
     Dates: end: 20090201
  5. NORVASC [Concomitant]
     Dates: start: 20081001
  6. HEPARIN [Concomitant]
     Dates: start: 20081101
  7. SANDIMMUNE [Concomitant]
     Dates: start: 19990101, end: 20090101
  8. AMLODIPINE BESYLATE [Concomitant]
     Route: 048
  9. NIFEREX [Concomitant]
     Route: 048
  10. CALCITRIOL [Concomitant]
     Route: 048
  11. SODIUM BICARBONATE [Concomitant]
     Route: 048
  12. IRON [Concomitant]
  13. AMBIEN [Concomitant]
  14. LAXATIVES [Concomitant]
  15. UNSPECIFIED MEDICATION [Concomitant]
  16. MYCOPHENOLATE MOFETIL [Concomitant]

REACTIONS (10)
  - ABDOMINAL PAIN [None]
  - ALOPECIA [None]
  - ANAEMIA [None]
  - BONE MARROW FAILURE [None]
  - DYSPNOEA EXERTIONAL [None]
  - GASTROINTESTINAL DISORDER [None]
  - KIDNEY TRANSPLANT REJECTION [None]
  - LEUKOPENIA [None]
  - PYREXIA [None]
  - RASH ERYTHEMATOUS [None]
